FAERS Safety Report 5389823-2 (Version None)
Quarter: 2007Q3

REPORT INFORMATION
  Report Type: 
  Country: None (occurrence: None)
  Receive Date: 20070718
  Receipt Date: 20070710
  Transmission Date: 20080115
  Serious: Yes (Life-Threatening, Hospitalization, Other)
  Sender: FDA-Public Use
  Company Number: PHBS2007BR11909

PATIENT
  Age: 57 Year
  Sex: Male
  Weight: 40 kg

DRUGS (9)
  1. LIORESAL [Suspect]
     Indication: MUSCLE SPASMS
     Dosage: 5 MG, Q8H
     Route: 048
  2. LIORESAL [Suspect]
     Dosage: 10 MG, Q8H
     Route: 048
  3. CHLORAMPHENICOL [Concomitant]
  4. TAMICOFINA [Concomitant]
  5. CLINDAMYCIN HCL [Concomitant]
  6. CIPROFLOXACIN [Concomitant]
  7. RAMIPROLINA [Concomitant]
  8. ASPIRIN [Concomitant]
  9. CAPTOPRIL [Concomitant]

REACTIONS (13)
  - AGITATION [None]
  - COMA [None]
  - HAEMOGLOBIN DECREASED [None]
  - INTUBATION [None]
  - LIFE SUPPORT [None]
  - MENTAL DISORDER [None]
  - MOVEMENT DISORDER [None]
  - MUSCLE SPASMS [None]
  - NERVOUSNESS [None]
  - RESPIRATORY FAILURE [None]
  - RESPIRATORY TRACT INFECTION [None]
  - TRACHEOSTOMY [None]
  - WHITE BLOOD CELL COUNT DECREASED [None]
